FAERS Safety Report 10087778 (Version 1)
Quarter: 2014Q2

REPORT INFORMATION
  Report Type: Spontaneous
  Country: US (occurrence: US)
  Receive Date: 20140418
  Receipt Date: 20140418
  Transmission Date: 20141212
  Serious: No
  Sender: FDA-Public Use
  Company Number: US-PURDUE-USA-2014-0110895

PATIENT
  Sex: Male

DRUGS (1)
  1. OXYCONTIN (NDA 22-272) [Suspect]
     Indication: LUMBAR SPINAL STENOSIS
     Dosage: 30 MG, Q12H
     Route: 048
     Dates: start: 201201

REACTIONS (1)
  - Breakthrough pain [Recovered/Resolved]
